FAERS Safety Report 4717665-7 (Version None)
Quarter: 2005Q3

REPORT INFORMATION
  Report Type: 
  Country: None (occurrence: None)
  Receive Date: 20050713
  Receipt Date: 20050531
  Transmission Date: 20060218
  Serious: Yes (Other)
  Sender: FDA-Public Use
  Company Number: 381894

PATIENT
  Sex: Male

DRUGS (1)
  1. FUZEON [Suspect]
     Dates: start: 20040713

REACTIONS (2)
  - FATIGUE [None]
  - INJECTION SITE MASS [None]
